FAERS Safety Report 4315848-1 (Version None)
Quarter: 2004Q1

REPORT INFORMATION
  Report Type: 
  Country: None (occurrence: None)
  Receive Date: 20040303
  Receipt Date: 20030919
  Transmission Date: 20041129
  Serious: Yes (Other)
  Sender: FDA-Public Use
  Company Number: US-JNJFOC-20030905371

PATIENT
  Age: 49 Year
  Sex: Female

DRUGS (1)
  1. FLOXIN (OFLOXACIN) UNSPECIFIED [Suspect]
     Indication: URINARY TRACT INFECTION

REACTIONS (1)
  - TENDONITIS [None]
